FAERS Safety Report 4700955-1 (Version None)
Quarter: 2005Q2

REPORT INFORMATION
  Report Type: 
  Country: None (occurrence: None)
  Receive Date: 20050113
  Receipt Date: 20050113
  Transmission Date: 20051028
  Serious: Yes (Life-Threatening)
  Sender: FDA-Public Use
  Company Number: None

PATIENT
  Sex: Male
  Weight: 112.0385 kg

DRUGS (1)
  1. WARFARIN [Suspect]
     Dosage: 1 MG COUMADIN PO  2 MG COUMADIN PO
     Route: 048

REACTIONS (2)
  - ANTICOAGULATION DRUG LEVEL BELOW THERAPEUTIC [None]
  - THERAPEUTIC RESPONSE UNEXPECTED WITH DRUG SUBSTITUTION [None]
